FAERS Safety Report 8034363-5 (Version None)
Quarter: 2012Q1

REPORT INFORMATION
  Report Type: 
  Country: None (occurrence: None)
  Receive Date: 20120110
  Receipt Date: 20120104
  Transmission Date: 20120608
  Serious: Yes (Other)
  Sender: FDA-Public Use
  Company Number: PHHY2012CH000947

PATIENT
  Age: 71 Year
  Sex: Female
  Weight: 47 kg

DRUGS (6)
  1. ENALAPRIL MALEATE [Suspect]
     Indication: ESSENTIAL HYPERTENSION
     Dosage: 40 MG, QD
     Route: 048
     Dates: start: 20090601
  2. CRESTOR [Suspect]
     Dosage: 10 MG, QD
     Route: 048
     Dates: start: 20110826, end: 20111201
  3. PRAMIPEXOLE DIHYDROCHLORIDE [Suspect]
     Dosage: 0.25 MG, QD
     Route: 048
     Dates: start: 20100601
  4. METOPROLOL TARTRATE [Suspect]
     Indication: ESSENTIAL HYPERTENSION
     Dosage: 50 MG, QD
     Route: 048
     Dates: start: 20070901
  5. ENALAPRIL MALEATE AND HYDROCHLOROTHIAZIDE [Suspect]
     Dosage: 20 MG, QD
     Route: 048
     Dates: start: 20101001
  6. BURGERSTEIN ZINKGLUKONAT [Suspect]
     Dosage: 15 MG, QD
     Route: 048
     Dates: start: 20060101

REACTIONS (2)
  - PARAESTHESIA ORAL [None]
  - DYSGEUSIA [None]
